FAERS Safety Report 11813593 (Version 1)
Quarter: 2015Q4

REPORT INFORMATION
  Report Type: Spontaneous
  Country: US (occurrence: US)
  Receive Date: 20151209
  Receipt Date: 20151209
  Transmission Date: 20160305
  Serious: No
  Sender: FDA-Public Use
  Company Number: US-BAYER-2015-484031

PATIENT
  Age: 41 Year
  Sex: Female
  Weight: 51.25 kg

DRUGS (2)
  1. MENSTRIDOL [Suspect]
     Active Substance: NAPROXEN SODIUM
     Indication: DYSMENORRHOEA
     Dosage: 4 DF, ONCE
  2. MENSTRIDOL [Suspect]
     Active Substance: NAPROXEN SODIUM
     Indication: DYSMENORRHOEA
     Dosage: 3 DF, PRN
     Route: 048
     Dates: start: 2014, end: 20151130

REACTIONS (7)
  - Product use issue [None]
  - Headache [None]
  - Nausea [None]
  - Drug ineffective [None]
  - Product use issue [None]
  - Tremor [None]
  - Ocular discomfort [None]

NARRATIVE: CASE EVENT DATE: 20151130
